FAERS Safety Report 16827888 (Version 2)
Quarter: 2019Q3

REPORT INFORMATION
  Report Type: Spontaneous
  Country: US (occurrence: US)
  Receive Date: 20190919
  Receipt Date: 20190923
  Transmission Date: 20191005
  Serious: No
  Sender: FDA-Public Use
  Company Number: US-PFIZER INC-2019401081

PATIENT
  Age: 52 Year
  Sex: Female
  Weight: 45.36 kg

DRUGS (5)
  1. COPPER [Suspect]
     Active Substance: COPPER
     Indication: COPPER DEFICIENCY
     Dosage: 2 MG, DAILY
     Route: 048
  2. EFFEXOR [Concomitant]
     Active Substance: VENLAFAXINE HYDROCHLORIDE
     Indication: ANXIETY
     Dosage: 225 MG, DAILY
     Route: 048
  3. COPPER CHLORIDE [Suspect]
     Active Substance: CUPRIC CHLORIDE
     Indication: COPPER DEFICIENCY
     Dosage: UNK
  4. LEVOTHYROXINE. [Concomitant]
     Active Substance: LEVOTHYROXINE
     Indication: HYPOTHYROIDISM
     Dosage: 60 UG, DAILY
     Route: 048
     Dates: start: 2017
  5. COPPER [Suspect]
     Active Substance: COPPER
     Dosage: 8 MG, DAILY
     Route: 048
     Dates: start: 201904

REACTIONS (4)
  - Vision blurred [Not Recovered/Not Resolved]
  - Drug ineffective [Unknown]
  - Gait inability [Not Recovered/Not Resolved]
  - Malabsorption [Unknown]

NARRATIVE: CASE EVENT DATE: 201908
